FAERS Safety Report 25798985 (Version 2)
Quarter: 2025Q4

REPORT INFORMATION
  Report Type: Spontaneous
  Country: US (occurrence: US)
  Receive Date: 20250913
  Receipt Date: 20251215
  Transmission Date: 20260118
  Serious: No
  Sender: ACCORD
  Company Number: US-Accord-503226

PATIENT

DRUGS (1)
  1. UDENYCA [Suspect]
     Active Substance: PEGFILGRASTIM-CBQV
     Indication: Product used for unknown indication
     Dosage: STRENGTH: 6MG/ 0.6ML

REACTIONS (3)
  - Device malfunction [Unknown]
  - No adverse event [Unknown]
  - Device malfunction [Unknown]
